FAERS Safety Report 15630230 (Version 1)
Quarter: 2018Q4

REPORT INFORMATION
  Report Type: Spontaneous
  Country: US (occurrence: US)
  Receive Date: 20181116
  Receipt Date: 20181116
  Transmission Date: 20190205
  Serious: Yes (Life-Threatening, Other)
  Sender: FDA-Public Use
  Company Number: None

PATIENT
  Age: 69 Year
  Sex: Male
  Weight: 83.91 kg

DRUGS (23)
  1. COLESTIPOL [Concomitant]
     Active Substance: COLESTIPOL
  2. FLUTICASONE SPRAY [Concomitant]
     Active Substance: FLUTICASONE
  3. TRAMADOL HCL [Concomitant]
     Active Substance: TRAMADOL HYDROCHLORIDE
  4. AREDS2 [Concomitant]
  5. VITAMIN C [Concomitant]
     Active Substance: ASCORBIC ACID
  6. GABAPENTIN. [Concomitant]
     Active Substance: GABAPENTIN
  7. TOPIRAMARE [Concomitant]
  8. IRON [Concomitant]
     Active Substance: IRON
  9. TRAZODONE [Concomitant]
     Active Substance: TRAZODONE HYDROCHLORIDE
  10. FUROSEMIDE. [Concomitant]
     Active Substance: FUROSEMIDE
  11. CENTIRIZINE [Concomitant]
  12. ALLOPURINOL. [Concomitant]
     Active Substance: ALLOPURINOL
  13. HUMALOG [Concomitant]
     Active Substance: INSULIN LISPRO
  14. TYSABRI [Suspect]
     Active Substance: NATALIZUMAB
     Indication: RELAPSING-REMITTING MULTIPLE SCLEROSIS
     Route: 042
     Dates: start: 201808, end: 201809
  15. OMEPRAZOLE. [Concomitant]
     Active Substance: OMEPRAZOLE
  16. TAMSULOSIN [Concomitant]
     Active Substance: TAMSULOSIN
  17. MIRTAZPINE [Concomitant]
     Active Substance: MIRTAZAPINE
  18. VASCEPA [Concomitant]
     Active Substance: ICOSAPENT ETHYL
  19. LANTUS [Concomitant]
     Active Substance: INSULIN GLARGINE
  20. FOLIC ACID. [Suspect]
     Active Substance: FOLIC ACID
  21. VITAMIN B12 [Concomitant]
     Active Substance: CYANOCOBALAMIN
  22. VITAMIN D3 [Concomitant]
     Active Substance: CHOLECALCIFEROL
  23. COPAXONE [Concomitant]
     Active Substance: GLATIRAMER ACETATE

REACTIONS (3)
  - Pulmonary mass [None]
  - Lymphadenopathy [None]
  - Mycobacterium avium complex infection [None]

NARRATIVE: CASE EVENT DATE: 201809
